FAERS Safety Report 6160954-2 (Version None)
Quarter: 2009Q2

REPORT INFORMATION
  Report Type: 
  Country: None (occurrence: None)
  Receive Date: 20090420
  Receipt Date: 20080207
  Transmission Date: 20091009
  Serious: Yes (Hospitalization)
  Sender: FDA-Public Use
  Company Number: PHBS2007JP18767

PATIENT
  Sex: Male
  Weight: 66 kg

DRUGS (9)
  1. DIOVAN [Suspect]
     Indication: HYPERTENSION
     Dosage: 80 MG, QD
     Route: 048
     Dates: start: 20070727, end: 20071122
  2. DISOPYRAMIDE [Concomitant]
     Indication: ATRIAL FIBRILLATION
     Dosage: 2 DF, UNK
     Route: 048
     Dates: start: 20000706
  3. DIGOXIN [Concomitant]
     Indication: ATRIAL FIBRILLATION
     Dosage: 0.25 MG, UNK
     Route: 048
     Dates: start: 20000706
  4. ASPIRIN [Concomitant]
     Indication: ATRIAL FIBRILLATION
     Dosage: 100 MG, UNK
     Route: 048
  5. DICHLOTRIDE [Concomitant]
  6. AMARYL [Concomitant]
     Indication: TYPE 2 DIABETES MELLITUS
     Dosage: 6 MG, UNK
     Route: 048
  7. VOGLIBOSE [Concomitant]
     Indication: TYPE 2 DIABETES MELLITUS
     Dosage: 0.2 MG, UNK
     Route: 048
  8. WARFARIN SODIUM [Concomitant]
  9. MYSLEE [Concomitant]

REACTIONS (18)
  - BACK PAIN [None]
  - BLOOD CREATINE PHOSPHOKINASE INCREASED [None]
  - BLOOD CREATININE INCREASED [None]
  - BLOOD PRESSURE DECREASED [None]
  - BLOOD UREA INCREASED [None]
  - CHROMATURIA [None]
  - HAEMOGLOBIN DECREASED [None]
  - INFLAMMATION [None]
  - MYOGLOBIN BLOOD INCREASED [None]
  - OLIGURIA [None]
  - PLATELET COUNT DECREASED [None]
  - PYREXIA [None]
  - PYURIA [None]
  - RENAL FAILURE ACUTE [None]
  - RENAL IMPAIRMENT [None]
  - RHABDOMYOLYSIS [None]
  - URINARY TRACT INFECTION [None]
  - WHITE BLOOD CELL COUNT INCREASED [None]
